FAERS Safety Report 19258641 (Version 1)
Quarter: 2021Q2

REPORT INFORMATION
  Report Type: Spontaneous
  Country: US (occurrence: US)
  Receive Date: 20210514
  Receipt Date: 20210514
  Transmission Date: 20210717
  Serious: Yes (Hospitalization)
  Sender: FDA-Public Use
  Company Number: US-ASTRAZENECA-2021A424925

PATIENT
  Sex: Male
  Weight: 24.4 kg

DRUGS (14)
  1. ALBUTEROL. [Concomitant]
     Active Substance: ALBUTEROL
  2. TOPICORT [Concomitant]
     Active Substance: DESOXIMETASONE
  3. MOMETASONE [Concomitant]
     Active Substance: MOMETASONE
  4. VITAMIN D [Concomitant]
     Active Substance: VITAMIN D NOS
  5. FLOVENT [Concomitant]
     Active Substance: FLUTICASONE PROPIONATE
  6. LORATADINE. [Concomitant]
     Active Substance: LORATADINE
  7. TRIAMCINOLONE [Concomitant]
     Active Substance: TRIAMCINOLONE
  8. KOSELUGO [Suspect]
     Active Substance: SELUMETINIB
     Indication: NEUROFIBROMATOSIS
     Route: 048
     Dates: start: 20200514
  9. GABAPENTIN. [Concomitant]
     Active Substance: GABAPENTIN
  10. RANITIDINE. [Concomitant]
     Active Substance: RANITIDINE
  11. KOSELUGO [Suspect]
     Active Substance: SELUMETINIB
     Indication: NEUROFIBROMATOSIS
     Dosage: UNKNOWN
     Route: 048
  12. HYDROXYZINE [Concomitant]
     Active Substance: HYDROXYZINE HYDROCHLORIDE
  13. SODIUM CHLORIDE. [Concomitant]
     Active Substance: SODIUM CHLORIDE
  14. DESONIDE. [Concomitant]
     Active Substance: DESONIDE

REACTIONS (1)
  - Pericardial effusion [Unknown]
